FAERS Safety Report 9311796 (Version 4)
Quarter: 2013Q3

REPORT INFORMATION
  Report Type: Spontaneous
  Country: PT (occurrence: PT)
  Receive Date: 20130528
  Receipt Date: 20130712
  Transmission Date: 20140515
  Serious: Yes (Other)
  Sender: FDA-Public Use
  Company Number: PHHY2013PT051972

PATIENT
  Age: 35 Year
  Sex: Female
  Weight: 44 kg

DRUGS (6)
  1. GILENYA [Suspect]
     Indication: MULTIPLE SCLEROSIS
     Dosage: 0.5 MG, QD
     Route: 048
     Dates: start: 20120921, end: 20121117
  2. GILENYA [Suspect]
     Dosage: 0.5 MG, QD
     Route: 048
     Dates: start: 20121129
  3. ESCITALOPRAM [Concomitant]
     Dosage: 20 MG, QD
  4. CALCITRIOL [Concomitant]
     Dosage: 0.25 MG, QD
  5. FOLIC ACID [Concomitant]
     Dosage: 5 MG, QD
  6. COBALAMIN [Concomitant]
     Dosage: 1 MG, QD

REACTIONS (3)
  - Blighted ovum [Unknown]
  - Abortion spontaneous [Unknown]
  - Maternal exposure during pregnancy [Unknown]
